FAERS Safety Report 19086267 (Version 8)
Quarter: 2021Q3

REPORT INFORMATION
  Report Type: Spontaneous
  Country: CA (occurrence: CA)
  Receive Date: 20210402
  Receipt Date: 20210921
  Transmission Date: 20211014
  Serious: Yes (Other)
  Sender: FDA-Public Use
  Company Number: CA-CELLTRION INC.-2021CA003051

PATIENT

DRUGS (11)
  1. INFLECTRA [Suspect]
     Active Substance: INFLIXIMAB-DYYB
     Indication: COLITIS ULCERATIVE
     Dosage: 1 DF (FIRST DOSE RECEIVED IN HOSPITAL DOSE UNKNOWN)
     Route: 042
     Dates: start: 20210211, end: 20210212
  2. INFLECTRA [Suspect]
     Active Substance: INFLIXIMAB-DYYB
     Dosage: 600 MG, EVERY 6 WEEKS
     Route: 042
     Dates: start: 20210910
  3. INFLECTRA [Suspect]
     Active Substance: INFLIXIMAB-DYYB
     Dosage: 1 DF (FIRST DOSE RECEIVED IN HOSPITAL DOSE UNKNOWN)
     Route: 042
     Dates: start: 20210211, end: 20210211
  4. INFLECTRA [Suspect]
     Active Substance: INFLIXIMAB-DYYB
     Dosage: 600 MG,INDUCTION DOSES AT WEEK 2 AND 6, THEN EVERY 8 WEEKS
     Route: 042
     Dates: start: 20210324
  5. INFLECTRA [Suspect]
     Active Substance: INFLIXIMAB-DYYB
     Dosage: 600 MG,INDUCTION DOSES AT WEEK 2 AND 6, THEN EVERY 8 WEEKS
     Route: 042
     Dates: start: 20210226
  6. INFLECTRA [Suspect]
     Active Substance: INFLIXIMAB-DYYB
     Dosage: 600 MG, EVERY 6 WEEKS
     Route: 042
     Dates: start: 20210505
  7. INFLECTRA [Suspect]
     Active Substance: INFLIXIMAB-DYYB
     Dosage: 600 MG, EVERY 6 WEEKS
     Route: 042
     Dates: start: 20210730
  8. CORTIMENT [HYDROCORTISONE] [Concomitant]
     Active Substance: HYDROCORTISONE
     Dosage: 1 DF (DOSAGE INFORMATION NOT AVAILABLE)
  9. INFLECTRA [Suspect]
     Active Substance: INFLIXIMAB-DYYB
     Dosage: 600 MG, EVERY 6 WEEKS
     Route: 042
     Dates: start: 20210505
  10. INFLECTRA [Suspect]
     Active Substance: INFLIXIMAB-DYYB
     Dosage: 600 MG, EVERY 6 WEEKS
     Route: 042
     Dates: start: 20210618
  11. PREDNISONE. [Concomitant]
     Active Substance: PREDNISONE
     Dosage: 1 DF (DOSAGE INFORMATION NOT AVAILABLE)

REACTIONS (9)
  - Myalgia [Not Recovered/Not Resolved]
  - Weight decreased [Unknown]
  - Tuberculosis [Not Recovered/Not Resolved]
  - Intentional product use issue [Unknown]
  - Off label use [Unknown]
  - Pain in extremity [Recovered/Resolved]
  - Off label use [Unknown]
  - Headache [Unknown]
  - Haemorrhage [Unknown]

NARRATIVE: CASE EVENT DATE: 2021
